FAERS Safety Report 6226149-9 (Version None)
Quarter: 2009Q2

REPORT INFORMATION
  Report Type: 
  Country: None (occurrence: None)
  Receive Date: 20090612
  Receipt Date: 20070516
  Transmission Date: 20091009
  Serious: Yes (Other)
  Sender: FDA-Public Use
  Company Number: US-ASTRAZENECA-2006UW11717

PATIENT
  Age: 46 Year
  Sex: Female
  Weight: 102 kg

DRUGS (21)
  1. SEROQUEL [Suspect]
     Dosage: 25-400 MG (FLUCTUATING)
     Route: 048
     Dates: start: 20030127
  2. SEROQUEL [Suspect]
     Route: 048
     Dates: end: 20060101
  3. RISPERDAL [Suspect]
     Dosage: 0.5-2 MG AT NIGHT
     Route: 048
     Dates: start: 20020214
  4. RISPERDAL [Suspect]
     Dates: start: 20060101
  5. NEXIUM [Concomitant]
     Route: 048
     Dates: start: 20030429
  6. CELEXA [Concomitant]
     Dosage: 20-80 MG
     Route: 048
     Dates: start: 20020204
  7. TRAMADOL HCL [Concomitant]
     Indication: HEADACHE
     Route: 048
     Dates: start: 20030923
  8. EFFEXOR XR [Concomitant]
     Dosage: 37.5-3000 MG (FLUCTUATING)
     Route: 048
     Dates: start: 20020314
  9. TRAZODONE HCL [Concomitant]
     Dosage: 50 MG 1-2 AT NIGHT
     Route: 048
     Dates: start: 20010905
  10. HYDROCHLOROTHIAZIDE [Concomitant]
     Indication: HYPERTENSION
     Route: 048
     Dates: start: 20030327
  11. LIPITOR [Concomitant]
     Route: 048
     Dates: start: 20030327
  12. CLONIDINE [Concomitant]
     Indication: HYPERTENSION
     Route: 048
     Dates: start: 20010905
  13. CITALOPRAM [Concomitant]
     Route: 048
     Dates: start: 20031020
  14. TOPAMAX [Concomitant]
     Indication: HEADACHE
     Dosage: 25-50 MG TWICE A DAILY
     Route: 048
     Dates: start: 20040915
  15. FIORICET [Concomitant]
     Indication: MIGRAINE
     Dosage: 4-6 PRN
     Route: 048
     Dates: start: 20020314
  16. ALBUTEROL [Concomitant]
     Dosage: 1-2 PUFF EVERY 4-6 HOURS
     Dates: start: 20030118
  17. PRILOSEC [Concomitant]
     Route: 048
     Dates: start: 20010905
  18. REGLAN [Concomitant]
     Indication: HEADACHE
     Route: 048
     Dates: start: 20041129
  19. NUBAIN [Concomitant]
     Dosage: 10-20 MG (FLUCTUATING)
     Route: 030
     Dates: start: 20020923
  20. NABUMETONE [Concomitant]
     Dates: start: 20030821
  21. INDERAL [Concomitant]
     Dosage: 20-80 MG 2 TWICE A DAILY
     Dates: start: 20030611

REACTIONS (4)
  - DIABETES MELLITUS [None]
  - DIABETIC RETINOPATHY [None]
  - PANCREATITIS [None]
  - TYPE 2 DIABETES MELLITUS [None]
